FAERS Safety Report 23492270 (Version 1)
Quarter: 2024Q1

REPORT INFORMATION
  Report Type: Report from Study
  Country: US (occurrence: US)
  Receive Date: 20240207
  Receipt Date: 20240207
  Transmission Date: 20240410
  Serious: No
  Sender: FDA-Public Use
  Company Number: US-ORG100014127-2023000948

PATIENT
  Age: 59 Year
  Sex: Female

DRUGS (4)
  1. LYSODREN [Suspect]
     Active Substance: MITOTANE
     Indication: Renal cancer
     Dosage: 01 TABLET 04 TIMES DAILY
     Route: 048
     Dates: start: 20230726
  2. LYRICA CAP 50MG [Concomitant]
     Indication: Product used for unknown indication
  3. OMEPRAZOLE TAB 20MG [Concomitant]
     Indication: Product used for unknown indication
  4. SERTRALINE [Concomitant]
     Active Substance: SERTRALINE HYDROCHLORIDE
     Indication: Product used for unknown indication

REACTIONS (1)
  - Product use complaint [Unknown]

NARRATIVE: CASE EVENT DATE: 20230726
